FAERS Safety Report 8276426-5 (Version None)
Quarter: 2012Q2

REPORT INFORMATION
  Report Type: 
  Country: None (occurrence: None)
  Receive Date: 20120412
  Receipt Date: 20120405
  Transmission Date: 20120825
  Serious: Yes (Other)
  Sender: FDA-Public Use
  Company Number: US-SANOFI-AVENTIS-2012SA015646

PATIENT
  Sex: Female

DRUGS (3)
  1. MULTAQ [Suspect]
     Indication: ATRIAL FIBRILLATION
     Route: 048
  2. COREG [Concomitant]
  3. MULTAQ [Suspect]
     Route: 048
     Dates: end: 20120101

REACTIONS (4)
  - ATRIAL FIBRILLATION [None]
  - FATIGUE [None]
  - PAIN [None]
  - DIZZINESS [None]
